FAERS Safety Report 11262536 (Version 3)
Quarter: 2015Q3

REPORT INFORMATION
  Report Type: Spontaneous
  Country: US (occurrence: US)
  Receive Date: 20150710
  Receipt Date: 20150803
  Transmission Date: 20151125
  Serious: No
  Sender: FDA-Public Use
  Company Number: US-GILEAD-2015-0162291

PATIENT
  Sex: Female

DRUGS (1)
  1. CAYSTON [Suspect]
     Active Substance: AZTREONAM
     Indication: PRODUCT USED FOR UNKNOWN INDICATION
     Dosage: 75 MG, BID EVERY OTHER MONTH
     Route: 055
     Dates: start: 20150401, end: 20150706

REACTIONS (3)
  - Bronchospasm [Unknown]
  - Off label use [Unknown]
  - Cough [Unknown]
